FAERS Safety Report 9427194 (Version 1)
Quarter: 2013Q3

REPORT INFORMATION
  Report Type: Report from Study
  Country: US (occurrence: US)
  Receive Date: 20130730
  Receipt Date: 20130730
  Transmission Date: 20140515
  Serious: No
  Sender: FDA-Public Use
  Company Number: US-ABBOTT-12P-163-0976743-00

PATIENT
  Sex: Male
  Weight: 90.8 kg

DRUGS (3)
  1. NIASPAN (COATED) [Suspect]
     Indication: CORONARY ARTERY DISEASE
     Dates: start: 201111, end: 201202
  2. NIASPAN (COATED) [Suspect]
     Indication: FAMILIAL RISK FACTOR
     Dates: start: 201202
  3. UNKNOWN MEDICATION [Concomitant]
     Indication: DIABETES MELLITUS
     Dates: start: 20120904

REACTIONS (1)
  - Blood glucose increased [Not Recovered/Not Resolved]
